FAERS Safety Report 4403305-3 (Version None)
Quarter: 2004Q3

REPORT INFORMATION
  Report Type: 
  Country: None (occurrence: None)
  Receive Date: 20040721
  Receipt Date: 20040416
  Transmission Date: 20050211
  Serious: No
  Sender: FDA-Public Use
  Company Number: US-GLAXOSMITHKLINE-A0507448A

PATIENT
  Age: 49 Year
  Sex: Female

DRUGS (5)
  1. IMITREX [Suspect]
     Indication: MIGRAINE
     Route: 048
     Dates: start: 20040401
  2. PROZAC [Concomitant]
  3. GLUCOSAMINE [Concomitant]
  4. MULTI-VITAMIN [Concomitant]
  5. MOTRIN [Concomitant]

REACTIONS (1)
  - HEADACHE [None]
